FAERS Safety Report 10196302 (Version 1)
Quarter: 2014Q2

REPORT INFORMATION
  Report Type: Report from Study
  Country: US (occurrence: US)
  Receive Date: 20140527
  Receipt Date: 20140527
  Transmission Date: 20141212
  Serious: Yes (Hospitalization, Other)
  Sender: FDA-Public Use
  Company Number: US-ABBVIE-14P-163-1240046-00

PATIENT
  Age: 32 Year
  Sex: Female

DRUGS (6)
  1. HUMIRA [Suspect]
     Indication: PSORIATIC ARTHROPATHY
     Dates: start: 200901, end: 200909
  2. HUMIRA [Suspect]
     Indication: PSORIASIS
     Dates: start: 2010, end: 2012
  3. HUMIRA [Suspect]
     Dates: start: 201303
  4. ASPIRIN [Concomitant]
     Indication: PRODUCT USED FOR UNKNOWN INDICATION
  5. TYLENOL [Concomitant]
     Indication: PRODUCT USED FOR UNKNOWN INDICATION
     Dosage: 2 TABLETS 2-3-TIMES A DAY
  6. CALCIUM PLUS VITAMIN D [Concomitant]
     Indication: PRODUCT USED FOR UNKNOWN INDICATION
     Dosage: CALCIUM 600MG PLUS VITAMIN D 3-4 TABS PER DAY

REACTIONS (14)
  - Basedow^s disease [Recovered/Resolved]
  - Cerebrovascular accident [Recovering/Resolving]
  - Injection site pain [Not Recovered/Not Resolved]
  - Headache [Unknown]
  - Hypertension [Unknown]
  - Muscle spasms [Unknown]
  - Incorrect dose administered [Unknown]
  - Device issue [Unknown]
  - Device issue [Unknown]
  - Drug dose omission [Unknown]
  - Drug effect decreased [Unknown]
  - Psoriasis [Unknown]
  - Psoriatic arthropathy [Unknown]
  - Psoriasis [Unknown]
